FAERS Safety Report 6923458-2 (Version None)
Quarter: 2010Q3

REPORT INFORMATION
  Report Type: 
  Country: None (occurrence: None)
  Receive Date: 20100813
  Receipt Date: 20100806
  Transmission Date: 20110219
  Serious: Yes (Hospitalization)
  Sender: FDA-Public Use
  Company Number: GB-CEPHALON-2010001233

PATIENT
  Sex: Female

DRUGS (4)
  1. TRISENOX [Suspect]
     Indication: ACUTE MYELOID LEUKAEMIA
     Route: 041
     Dates: start: 20091028
  2. TRISENOX [Suspect]
     Indication: MYELODYSPLASTIC SYNDROME
  3. ATRA [Suspect]
     Indication: ACUTE MYELOID LEUKAEMIA
     Dates: start: 20091028
  4. ATRA [Suspect]
     Indication: MYELODYSPLASTIC SYNDROME

REACTIONS (3)
  - DRUG INTERACTION [None]
  - FALL [None]
  - MYOCARDITIS [None]
